FAERS Safety Report 6715780-X (Version None)
Quarter: 2010Q2

REPORT INFORMATION
  Report Type: 
  Country: None (occurrence: None)
  Receive Date: 20100507
  Receipt Date: 20100429
  Transmission Date: 20101027
  Serious: Yes (Other)
  Sender: FDA-Public Use
  Company Number: BR-PFIZER INC-2010011066

PATIENT
  Age: 78 Year
  Sex: Female
  Weight: 52 kg

DRUGS (4)
  1. LIPITOR [Suspect]
     Indication: BLOOD CHOLESTEROL
     Dosage: 15 MG, 1X/DAY
     Route: 048
     Dates: start: 20090519, end: 20100101
  2. LIPITOR [Suspect]
     Dosage: 10 MG, ALTERNATE DAY
     Route: 048
     Dates: start: 20100426
  3. ANTAK [Concomitant]
     Dosage: UNK
     Dates: start: 20100301
  4. OSCAL 500-D [Concomitant]
     Dosage: UNK
     Dates: start: 20050101

REACTIONS (7)
  - BLOOD CHOLESTEROL ABNORMAL [None]
  - CONFUSIONAL STATE [None]
  - FATIGUE [None]
  - MALAISE [None]
  - PAIN [None]
  - PAIN IN EXTREMITY [None]
  - WEIGHT INCREASED [None]
